FAERS Safety Report 8376509-5 (Version None)
Quarter: 2012Q1

REPORT INFORMATION
  Report Type: 
  Country: None (occurrence: None)
  Receive Date: 20120323
  Receipt Date: 20111122
  Transmission Date: 20120608
  Serious: Yes (Hospitalization)
  Sender: FDA-Public Use
  Company Number: 163-21880-11080905

PATIENT
  Age: 73 Year
  Sex: Male

DRUGS (1)
  1. REVLIMID [Suspect]
     Indication: MULTIPLE MYELOMA
     Dosage: 10 MG, DAILY X 21 DAYS, PO
     Route: 048
     Dates: start: 20090701

REACTIONS (4)
  - IMMUNOGLOBULINS INCREASED [None]
  - OSTEOARTHRITIS [None]
  - FATIGUE [None]
  - DISCOMFORT [None]
